FAERS Safety Report 23433129 (Version 1)
Quarter: 2024Q1

REPORT INFORMATION
  Report Type: Spontaneous
  Country: US (occurrence: US)
  Receive Date: 20240123
  Receipt Date: 20240123
  Transmission Date: 20240409
  Serious: Yes (Other)
  Sender: FDA-Public Use
  Company Number: US-ABBVIE-5593539

PATIENT
  Sex: Female

DRUGS (1)
  1. HUMIRA [Suspect]
     Active Substance: ADALIMUMAB
     Indication: Product used for unknown indication
     Route: 058

REACTIONS (11)
  - Neoplasm [Unknown]
  - Drug ineffective [Unknown]
  - Rash [Recovered/Resolved]
  - Fatigue [Unknown]
  - Illness [Unknown]
  - Tinea pedis [Unknown]
  - Onychomycosis [Unknown]
  - Skin discharge [Recovered/Resolved]
  - Hidradenitis [Unknown]
  - Swelling [Recovered/Resolved]
  - Injury [Unknown]
